FAERS Safety Report 4364315-8 (Version None)
Quarter: 2004Q2

REPORT INFORMATION
  Report Type: 
  Country: None (occurrence: None)
  Receive Date: 20040525
  Receipt Date: 20030415
  Transmission Date: 20050107
  Serious: No
  Sender: FDA-Public Use
  Company Number: US-BRISTOL-MYERS SQUIBB COMPANY-12240529

PATIENT
  Age: 65 Year
  Sex: Female

DRUGS (2)
  1. CYTOXAN [Suspect]
  2. ADRIAMYCIN PFS [Suspect]

REACTIONS (1)
  - WEIGHT INCREASED [None]
